FAERS Safety Report 7804464-2 (Version None)
Quarter: 2011Q4

REPORT INFORMATION
  Report Type: 
  Country: None (occurrence: None)
  Receive Date: 20111010
  Receipt Date: 20111004
  Transmission Date: 20120403
  Serious: Yes (Hospitalization, Other)
  Sender: FDA-Public Use
  Company Number: JP-ROCHE-802413

PATIENT
  Sex: Female
  Weight: 44 kg

DRUGS (11)
  1. DOCETAXEL [Suspect]
     Indication: BREAST CANCER METASTATIC
     Route: 041
     Dates: start: 20100630, end: 20110420
  2. LENDORMIN [Concomitant]
     Dosage: UNCERTAIN DOSAGE AND SINGLE USE
     Route: 048
  3. PLACEBO [Suspect]
     Indication: BREAST CANCER METASTATIC
     Route: 042
     Dates: start: 20100629, end: 20100629
  4. HERCEPTIN [Suspect]
     Indication: BREAST CANCER METASTATIC
     Route: 041
     Dates: start: 20100630, end: 20100630
  5. VINORELBINE TARTRATE [Suspect]
     Indication: BREAST CANCER METASTATIC
     Route: 041
     Dates: start: 20110524, end: 20110623
  6. PLACEBO [Suspect]
     Route: 042
  7. GEMZAR [Concomitant]
     Dosage: DOSAGE IS UNCERTAIN.
     Route: 041
  8. HERCEPTIN [Suspect]
     Route: 041
     Dates: start: 20110524, end: 20110816
  9. HERCEPTIN [Suspect]
     Route: 041
     Dates: start: 20110706
  10. IODINE [Concomitant]
     Route: 061
  11. HERCEPTIN [Suspect]
     Route: 041
     Dates: start: 20110420, end: 20110420

REACTIONS (7)
  - MALAISE [None]
  - VASCULITIS [None]
  - PRINZMETAL ANGINA [None]
  - CHEST DISCOMFORT [None]
  - PALPITATIONS [None]
  - ELECTROCARDIOGRAM T WAVE INVERSION [None]
  - CONDITION AGGRAVATED [None]
